FAERS Safety Report 5337222-1 (Version None)
Quarter: 2007Q2

REPORT INFORMATION
  Report Type: 
  Country: None (occurrence: None)
  Receive Date: 20070529
  Receipt Date: 20070524
  Transmission Date: 20071010
  Serious: Yes (Hospitalization)
  Sender: FDA-Public Use
  Company Number: A0652871A

PATIENT
  Age: 15 Year
  Sex: Female

DRUGS (5)
  1. WELLBUTRIN XL [Suspect]
     Indication: DEPRESSION
     Dosage: 6000MG SINGLE DOSE
     Route: 048
     Dates: start: 20061101, end: 20070201
  2. PROZAC [Concomitant]
  3. MARIJUANA [Concomitant]
  4. UNSPECIFIED MEDICATION [Concomitant]
  5. LSD [Concomitant]

REACTIONS (8)
  - BRAIN DAMAGE [None]
  - COMA [None]
  - CONVULSION [None]
  - GAIT DISTURBANCE [None]
  - MOTOR DYSFUNCTION [None]
  - OVERDOSE [None]
  - SPEECH DISORDER [None]
  - SUICIDE ATTEMPT [None]
